FAERS Safety Report 25137530 (Version 1)
Quarter: 2025Q1

REPORT INFORMATION
  Report Type: Spontaneous
  Country: AU (occurrence: AU)
  Receive Date: 20250329
  Receipt Date: 20250329
  Transmission Date: 20250409
  Serious: Yes (Other)
  Sender: ACCORD
  Company Number: None

PATIENT
  Age: 27 Year
  Sex: Female

DRUGS (6)
  1. MYCOPHENOLATE MOFETIL [Suspect]
     Active Substance: MYCOPHENOLATE MOFETIL
     Indication: Product used for unknown indication
  2. TACROLIMUS [Suspect]
     Active Substance: TACROLIMUS
     Indication: Product used for unknown indication
  3. ENALAPRIL [Concomitant]
     Active Substance: ENALAPRIL
  4. FUROSEMIDE [Concomitant]
     Active Substance: FUROSEMIDE
  5. INSULIN NOS [Concomitant]
     Active Substance: INSULIN NOS
  6. METHYLDOPA [Concomitant]
     Active Substance: METHYLDOPA

REACTIONS (3)
  - Infection [Unknown]
  - Renal failure [Unknown]
  - Drug ineffective [Unknown]
